FAERS Safety Report 7567986-8 (Version None)
Quarter: 2011Q2

REPORT INFORMATION
  Report Type: 
  Country: None (occurrence: None)
  Receive Date: 20110616
  Receipt Date: 20110607
  Transmission Date: 20111010
  Serious: Yes (Other)
  Sender: FDA-Public Use
  Company Number: US-2011-10367

PATIENT
  Age: 55 Year
  Sex: Female

DRUGS (4)
  1. METHOTREXATE [Concomitant]
  2. TACROLIMUS [Concomitant]
  3. FLUDARA [Suspect]
     Indication: BONE MARROW TRANSPLANT
     Dosage: 30 MG/M2, DAILY DOSE
  4. BUSULFAN [Suspect]
     Indication: BONE MARROW TRANSPLANT
     Dosage: 0.8 MG/KG, QID, INTRAVENOUS
     Route: 042
     Dates: start: 20070401

REACTIONS (1)
  - SARCOIDOSIS [None]
